FAERS Safety Report 8569420 (Version 3)
Quarter: 2012Q4

REPORT INFORMATION
  Report Type: Report from Study
  Country: US (occurrence: US)
  Receive Date: 20120518
  Receipt Date: 20120829
  Transmission Date: 20130627
  Serious: Yes (Hospitalization)
  Sender: FDA-Public Use
  Company Number: US-JNJFOC-20120509776

PATIENT
  Age: 14 Year
  Sex: Female
  Weight: 44.4 kg

DRUGS (9)
  1. REMICADE [Suspect]
     Indication: CROHN^S DISEASE
     Route: 042
  2. REMICADE [Suspect]
     Indication: CROHN^S DISEASE
     Route: 042
     Dates: start: 20120606
  3. HUMIRA [Concomitant]
     Dates: start: 20110827, end: 20120526
  4. METHOTREXATE [Concomitant]
  5. NEXIUM [Concomitant]
  6. FOLIC ACID [Concomitant]
  7. ELAVIL [Concomitant]
  8. PREDNISONE [Concomitant]
  9. ANTIBIOTICS [Concomitant]

REACTIONS (4)
  - Clostridium difficile colitis [Recovered/Resolved]
  - Crohn^s disease [Recovered/Resolved]
  - Anaemia [Recovered/Resolved]
  - Weight decreased [Recovered/Resolved]
